FAERS Safety Report 23436910 (Version 7)
Quarter: 2025Q3

REPORT INFORMATION
  Report Type: Spontaneous
  Country: EU (occurrence: EU)
  Receive Date: 20240124
  Receipt Date: 20250922
  Transmission Date: 20251021
  Serious: Yes (Other)
  Sender: SANDOZ
  Company Number: EU-002147023-NVSC2023DE259432

PATIENT
  Age: 77 Year
  Sex: Male
  Weight: 77 kg

DRUGS (112)
  1. ASPIRIN [Suspect]
     Active Substance: ASPIRIN
     Indication: Product used for unknown indication
     Route: 065
  2. AMBROXOL [Suspect]
     Active Substance: AMBROXOL
     Route: 065
  3. AMBROXOL [Suspect]
     Active Substance: AMBROXOL
     Indication: Product used for unknown indication
     Route: 065
  4. ACETIC ACID\DELTAMETHRIN [Suspect]
     Active Substance: ACETIC ACID\DELTAMETHRIN
     Indication: Product used for unknown indication
     Route: 065
  5. ACETIC ACID\DELTAMETHRIN [Suspect]
     Active Substance: ACETIC ACID\DELTAMETHRIN
     Route: 065
  6. ASPIRIN CALCIUM [Suspect]
     Active Substance: ASPIRIN CALCIUM
     Route: 065
  7. ASPIRIN CALCIUM [Suspect]
     Active Substance: ASPIRIN CALCIUM
     Indication: Product used for unknown indication
     Route: 065
  8. IBUPROFEN [Suspect]
     Active Substance: IBUPROFEN
     Indication: Product used for unknown indication
     Route: 048
  9. ALIROCUMAB [Suspect]
     Active Substance: ALIROCUMAB
     Indication: Product used for unknown indication
     Route: 065
  10. POTASSIUM ASPARTATE [Suspect]
     Active Substance: POTASSIUM ASPARTATE
     Indication: Product used for unknown indication
     Route: 065
  11. BIOTIN [Suspect]
     Active Substance: BIOTIN
     Indication: Product used for unknown indication
     Dosage: 1 DF, QD
     Route: 065
  12. BIOTIN [Suspect]
     Active Substance: BIOTIN
     Dosage: 1 DOSAGE FORM, QD(1 DF, QD )
     Route: 065
  13. BIOTIN [Suspect]
     Active Substance: BIOTIN
     Route: 065
  14. BISOPROLOL FUMARATE [Suspect]
     Active Substance: BISOPROLOL FUMARATE
     Indication: Product used for unknown indication
     Dosage: 1 DOSAGE FORM(QW, ROUTE: RESPIRATORY (INHALATION)2018
     Route: 055
     Dates: start: 2018, end: 20201210
  15. CALCIUM [Suspect]
     Active Substance: CALCIUM
     Route: 065
  16. CALCIUM [Suspect]
     Active Substance: CALCIUM
     Route: 065
  17. CALCIUM [Suspect]
     Active Substance: CALCIUM
     Route: 065
  18. CALCIUM [Suspect]
     Active Substance: CALCIUM
     Dosage: 500 MG, Q12H
     Route: 065
  19. CALCIUM [Suspect]
     Active Substance: CALCIUM
     Indication: Product used for unknown indication
     Route: 065
  20. CALCIUM PANTOTHENATE [Suspect]
     Active Substance: CALCIUM PANTOTHENATE
     Indication: Product used for unknown indication
     Dosage: UNK UNK, Q8H
     Route: 048
  21. COLESEVELAM HYDROCHLORIDE [Suspect]
     Active Substance: COLESEVELAM HYDROCHLORIDE
     Indication: Product used for unknown indication
     Route: 065
  22. CLOPIDOGREL BESILATE [Suspect]
     Active Substance: CLOPIDOGREL BESILATE
     Indication: Product used for unknown indication
     Dosage: UNK, QD, (DAILY BID (1-0-1)) 10-DEC-2020 00:00
     Route: 065
  23. COLESEVELAM [Suspect]
     Active Substance: COLESEVELAM
     Indication: Product used for unknown indication
     Route: 065
  24. COLESEVELAM [Suspect]
     Active Substance: COLESEVELAM
     Route: 065
  25. CRESTOR [Suspect]
     Active Substance: ROSUVASTATIN CALCIUM
     Indication: Product used for unknown indication
     Route: 048
  26. CRESTOR [Suspect]
     Active Substance: ROSUVASTATIN CALCIUM
     Route: 065
  27. DICLOFENAC [Suspect]
     Active Substance: DICLOFENAC
     Indication: Product used for unknown indication
     Route: 055
     Dates: start: 2018
  28. ERGOCALCIFEROL [Suspect]
     Active Substance: ERGOCALCIFEROL
     Dosage: 200 IU, QW(ROUTE: UNKNOWN, 20000  INTERNATIONAL UNIT, WEEKLY (1/W)
     Route: 065
  29. ERGOCALCIFEROL [Suspect]
     Active Substance: ERGOCALCIFEROL
     Indication: Product used for unknown indication
     Route: 065
  30. EVOLOCUMAB [Suspect]
     Active Substance: EVOLOCUMAB
     Dosage: 1 DOSAGE FORM, QW
     Route: 065
  31. EVOLOCUMAB [Suspect]
     Active Substance: EVOLOCUMAB
     Route: 065
  32. EVOLOCUMAB [Suspect]
     Active Substance: EVOLOCUMAB
     Indication: Product used for unknown indication
     Route: 065
  33. FLUTICASONE [Suspect]
     Active Substance: FLUTICASONE
     Indication: Dysphonia
     Route: 065
  34. GINKGO [Suspect]
     Active Substance: GINKGO
     Dosage: 1000 MG, ONCE EVERY 12HR (1000 MG,  BID (INTERVAL: 1 DAY) (UNK, STRENGTH: 500))
     Route: 065
  35. GINKGO [Suspect]
     Active Substance: GINKGO
     Indication: Product used for unknown indication
     Dosage: 2000 MG, QD 1000 MG, BID (INTERVAL: 1  DAY) STRENGTH: 500)
     Route: 065
  36. GINKGO [Suspect]
     Active Substance: GINKGO
     Dosage: 4000 MG, QD 2000 MG, BID(1000 MG,  BID (INTERVAL: 1 DAY) (UNK, STRENGTH: 500);  UNKNOWN )
     Route: 065
  37. IBUPROFEN [Suspect]
     Active Substance: IBUPROFEN
     Route: 065
  38. IBUPROFEN [Suspect]
     Active Substance: IBUPROFEN
     Route: 065
  39. IBUPROFEN [Suspect]
     Active Substance: IBUPROFEN
     Indication: Product used for unknown indication
     Route: 048
  40. IBUPROFEN [Suspect]
     Active Substance: IBUPROFEN
     Route: 048
  41. MOMETASONE [Suspect]
     Active Substance: MOMETASONE
     Dosage: 2 DF, QD
     Route: 065
  42. MOMETASONE [Suspect]
     Active Substance: MOMETASONE
     Indication: Product used for unknown indication
     Dosage: 2 DOSAGE FORM, Q12H(2 PUFFS BID)
     Route: 065
  43. MAGNESIUM OROTATE [Suspect]
     Active Substance: MAGNESIUM OROTATE
     Indication: Product used for unknown indication
     Dosage: UNK, Q8H,THREE TIMES A DAY (3-2-3)
     Route: 048
  44. MAGNESIUM GLUCONATE [Suspect]
     Active Substance: MAGNESIUM GLUCONATE
     Indication: Product used for unknown indication
     Route: 065
  45. MAGNESIUM OROTATE [Suspect]
     Active Substance: MAGNESIUM OROTATE
     Indication: Product used for unknown indication
     Route: 048
  46. MAGNESIUM OROTATE [Suspect]
     Active Substance: MAGNESIUM OROTATE
     Route: 065
  47. MOMETASONE FUROATE [Suspect]
     Active Substance: MOMETASONE FUROATE
     Indication: Product used for unknown indication
     Dosage: 2 DOSAGE FORM, QD(2 DF, QD,(2 DOSAGE  FORM, DAILY(1 IN 0.5 DAY))
     Route: 045
  48. MOMETASONE FUROATE [Suspect]
     Active Substance: MOMETASONE FUROATE
     Dosage: 2 DF, Q12H, TWO PUFFS TWICE A DAY
     Route: 045
  49. MOMETASONE FUROATE [Suspect]
     Active Substance: MOMETASONE FUROATE
     Route: 045
  50. AMBROXOL HYDROCHLORIDE [Suspect]
     Active Substance: AMBROXOL HYDROCHLORIDE
     Indication: Product used for unknown indication
     Route: 055
  51. OLMESARTAN MEDOXOMIL [Suspect]
     Active Substance: OLMESARTAN MEDOXOMIL
     Indication: Product used for unknown indication
     Route: 065
  52. OLMESARTAN MEDOXOMIL [Suspect]
     Active Substance: OLMESARTAN MEDOXOMIL
     Route: 065
  53. PANTOTHENIC ACID [Suspect]
     Active Substance: PANTOTHENIC ACID
     Indication: Product used for unknown indication
     Route: 055
     Dates: start: 2018
  54. PANTOTHENIC ACID [Suspect]
     Active Substance: PANTOTHENIC ACID
     Route: 055
  55. SOAP [Suspect]
     Active Substance: SOAP
     Indication: Pneumothorax
     Route: 065
  56. SOAP [Suspect]
     Active Substance: SOAP
     Indication: Secretion discharge
     Route: 065
  57. SOAP [Suspect]
     Active Substance: SOAP
     Indication: Cough
     Route: 065
  58. SOAP [Suspect]
     Active Substance: SOAP
     Indication: Dyspnoea
     Route: 065
  59. SOAP [Suspect]
     Active Substance: SOAP
     Indication: Asthma
  60. SOAP [Suspect]
     Active Substance: SOAP
     Indication: Bronchitis
  61. SOAP [Suspect]
     Active Substance: SOAP
     Indication: Dysphonia
  62. SOAP [Suspect]
     Active Substance: SOAP
     Indication: Nasopharyngitis
  63. PRALUENT [Suspect]
     Active Substance: ALIROCUMAB
     Indication: Product used for unknown indication
     Route: 065
  64. CALCIUM PANTOTHENATE [Suspect]
     Active Substance: CALCIUM PANTOTHENATE
     Indication: Product used for unknown indication
     Route: 065
  65. HERBALS [Suspect]
     Active Substance: HERBALS
     Indication: Product used for unknown indication
     Route: 065
  66. RIVAROXABAN [Suspect]
     Active Substance: RIVAROXABAN
     Indication: Product used for unknown indication
     Route: 065
  67. ROSUVASTATIN [Suspect]
     Active Substance: ROSUVASTATIN
     Indication: Product used for unknown indication
     Route: 048
  68. REPATHA [Suspect]
     Active Substance: EVOLOCUMAB
     Indication: Product used for unknown indication
     Dosage: 1 DF, QW
     Route: 065
  69. HERBALS\PHENYL SALICYLATE [Suspect]
     Active Substance: HERBALS\PHENYL SALICYLATE
     Indication: Asthma
     Dosage: 10 DRP, QD(10 GTT DROPS, QD)
     Route: 065
  70. HERBALS\PHENYL SALICYLATE [Suspect]
     Active Substance: HERBALS\PHENYL SALICYLATE
     Indication: Bronchitis
     Route: 065
  71. SOAP [Suspect]
     Active Substance: SOAP
     Indication: Nasopharyngitis
     Dosage: 10 DRP, QD(10 GTT DROPS, QD)
     Route: 065
  72. SOAP [Suspect]
     Active Substance: SOAP
     Indication: Dyspnoea
     Dosage: UNK (TIDCUTANEOUS EMULSION)
     Route: 065
  73. SOAP [Suspect]
     Active Substance: SOAP
     Indication: Product used for unknown indication
     Dosage: UNK, QD
     Route: 065
  74. SOAP [Suspect]
     Active Substance: SOAP
     Indication: Pneumothorax
     Dosage: UNK, Q3W
     Route: 003
  75. SOAP [Suspect]
     Active Substance: SOAP
     Indication: Secretion discharge
     Route: 065
  76. SOAP [Suspect]
     Active Substance: SOAP
     Indication: Bronchitis
     Route: 003
  77. SOAP [Suspect]
     Active Substance: SOAP
     Indication: Asthma
  78. SOAP [Suspect]
     Active Substance: SOAP
     Indication: Cough
  79. SOAP [Suspect]
     Active Substance: SOAP
     Indication: Dysphonia
  80. SOAP [Suspect]
     Active Substance: SOAP
     Indication: Product used for unknown indication
  81. TADALAFIL [Suspect]
     Active Substance: TADALAFIL
     Route: 065
  82. TADALAFIL [Suspect]
     Active Substance: TADALAFIL
     Indication: Product used for unknown indication
     Route: 065
  83. TAMSULOSIN [Suspect]
     Active Substance: TAMSULOSIN
     Indication: Product used for unknown indication
     Route: 065
  84. TAMSULOSIN HYDROCHLORIDE [Suspect]
     Active Substance: TAMSULOSIN HYDROCHLORIDE
     Indication: Product used for unknown indication
     Route: 065
  85. TAMSULOSIN HYDROCHLORIDE [Suspect]
     Active Substance: TAMSULOSIN HYDROCHLORIDE
     Route: 065
  86. TOCOPHEROL [Suspect]
     Active Substance: TOCOPHEROL
     Dosage: 2000 DOSAGE FORM, QW (2000 IU, QW (20000 IU, WE (UNK UNK, UNKNOWN  Q2W20000 UNK, QW)
     Route: 065
  87. TOCOPHEROL [Suspect]
     Active Substance: TOCOPHEROL
     Indication: Product used for unknown indication
     Route: 065
  88. MAGNESIUM ASPARTATE\POTASSIUM ASPARTATE [Suspect]
     Active Substance: MAGNESIUM ASPARTATE\POTASSIUM ASPARTATE
     Indication: Product used for unknown indication
     Route: 065
  89. FLUTICASONE PROPIONATE\SALMETEROL XINAFOATE [Suspect]
     Active Substance: FLUTICASONE PROPIONATE\SALMETEROL XINAFOATE
     Indication: Cough
     Route: 065
  90. FLUTICASONE PROPIONATE\SALMETEROL XINAFOATE [Suspect]
     Active Substance: FLUTICASONE PROPIONATE\SALMETEROL XINAFOATE
     Indication: Dysphonia
  91. FLUTICASONE PROPIONATE\SALMETEROL XINAFOATE [Suspect]
     Active Substance: FLUTICASONE PROPIONATE\SALMETEROL XINAFOATE
     Indication: Dyspnoea
  92. FLUTICASONE PROPIONATE\SALMETEROL XINAFOATE [Suspect]
     Active Substance: FLUTICASONE PROPIONATE\SALMETEROL XINAFOATE
     Indication: Nasopharyngitis
  93. FLUTICASONE PROPIONATE\SALMETEROL XINAFOATE [Suspect]
     Active Substance: FLUTICASONE PROPIONATE\SALMETEROL XINAFOATE
     Indication: Pneumothorax
  94. FLUTICASONE PROPIONATE\SALMETEROL XINAFOATE [Suspect]
     Active Substance: FLUTICASONE PROPIONATE\SALMETEROL XINAFOATE
     Indication: Secretion discharge
  95. OLMESARTAN MEDOXOMIL [Suspect]
     Active Substance: OLMESARTAN MEDOXOMIL
     Dosage: 2000 IU, QD(1000 INTERNATIONAL UNIT, BID )
     Route: 065
  96. OLMESARTAN MEDOXOMIL [Suspect]
     Active Substance: OLMESARTAN MEDOXOMIL
     Dosage: 500 IU, Q12H
     Route: 065
  97. OLMESARTAN MEDOXOMIL [Suspect]
     Active Substance: OLMESARTAN MEDOXOMIL
     Indication: Product used for unknown indication
     Route: 048
  98. XARELTO [Suspect]
     Active Substance: RIVAROXABAN
     Indication: Product used for unknown indication
     Route: 065
  99. CIALIS [Concomitant]
     Active Substance: TADALAFIL
     Indication: Product used for unknown indication
     Route: 065
  100. CIALIS [Concomitant]
     Active Substance: TADALAFIL
     Route: 065
  101. EUCALYPTUS OIL [Concomitant]
     Active Substance: EUCALYPTUS OIL
     Indication: Product used for unknown indication
     Route: 065
  102. Magnesiumaspartat [Concomitant]
     Dosage: 1000 MG, QD
     Route: 065
  103. Magnesiumaspartat [Concomitant]
     Indication: Product used for unknown indication
     Dosage: UNK, BID (UNK UNK, BID (STRENGTH 500))
     Route: 065
  104. PEPPERMINT OIL [Concomitant]
     Active Substance: PEPPERMINT OIL
     Indication: Product used for unknown indication
     Route: 065
  105. OLMESARTAN MEDOXOMIL [Concomitant]
     Active Substance: OLMESARTAN MEDOXOMIL
     Indication: Product used for unknown indication
     Route: 065
  106. PREDNISOLONE [Concomitant]
     Active Substance: PREDNISOLONE
     Indication: Product used for unknown indication
     Route: 065
  107. FLUTICASONE PROPIONATE\SALMETEROL XINAFOATE [Concomitant]
     Active Substance: FLUTICASONE PROPIONATE\SALMETEROL XINAFOATE
     Indication: Cough
     Route: 055
  108. FLUTICASONE PROPIONATE\SALMETEROL XINAFOATE [Concomitant]
     Active Substance: FLUTICASONE PROPIONATE\SALMETEROL XINAFOATE
     Indication: Dysphonia
  109. FLUTICASONE PROPIONATE\SALMETEROL XINAFOATE [Concomitant]
     Active Substance: FLUTICASONE PROPIONATE\SALMETEROL XINAFOATE
     Indication: Dyspnoea
  110. FLUTICASONE PROPIONATE\SALMETEROL XINAFOATE [Concomitant]
     Active Substance: FLUTICASONE PROPIONATE\SALMETEROL XINAFOATE
     Indication: Nasopharyngitis
  111. FLUTICASONE PROPIONATE\SALMETEROL XINAFOATE [Concomitant]
     Active Substance: FLUTICASONE PROPIONATE\SALMETEROL XINAFOATE
     Indication: Pneumothorax
  112. FLUTICASONE PROPIONATE\SALMETEROL XINAFOATE [Concomitant]
     Active Substance: FLUTICASONE PROPIONATE\SALMETEROL XINAFOATE
     Indication: Secretion discharge

REACTIONS (27)
  - Atrial fibrillation [Recovered/Resolved]
  - Dysphonia [Not Recovered/Not Resolved]
  - Pneumothorax [Not Recovered/Not Resolved]
  - Cough [Not Recovered/Not Resolved]
  - Obstructive sleep apnoea syndrome [Unknown]
  - Sensation of foreign body [Unknown]
  - Plantar fasciitis [Unknown]
  - Chest discomfort [Not Recovered/Not Resolved]
  - Coronary artery disease [Unknown]
  - Nasopharyngitis [Unknown]
  - Fractional exhaled nitric oxide increased [Recovered/Resolved]
  - Cardiac disorder [Unknown]
  - Exostosis [Unknown]
  - Myoglobin blood increased [Unknown]
  - Increased upper airway secretion [Unknown]
  - Muscle spasms [Unknown]
  - Wheezing [Unknown]
  - Secretion discharge [Unknown]
  - Brain natriuretic peptide increased [Unknown]
  - Obstructive airways disorder [Unknown]
  - Dyspnoea exertional [Unknown]
  - Eosinophilia [Unknown]
  - Bronchospasm [Unknown]
  - Muscle spasms [Unknown]
  - Dyspnoea [Unknown]
  - Increased upper airway secretion [Unknown]
  - Brain natriuretic peptide increased [Unknown]

NARRATIVE: CASE EVENT DATE: 20180101
